FAERS Safety Report 4372160-2 (Version None)
Quarter: 2004Q2

REPORT INFORMATION
  Report Type: 
  Country: None (occurrence: None)
  Receive Date: 20040607
  Receipt Date: 20040602
  Transmission Date: 20050107
  Serious: Yes (Disabling)
  Sender: FDA-Public Use
  Company Number: 369380

PATIENT
  Age: 76 Year
  Sex: Male

DRUGS (2)
  1. CARVEDILOL [Suspect]
     Indication: HYPERTENSION
     Dosage: 6.25MG PER DAY
     Route: 048
     Dates: start: 20040326, end: 20040505
  2. LISINOPRIL [Concomitant]
     Dates: start: 20040413

REACTIONS (2)
  - ASTHENIA [None]
  - BRONCHOSPASM [None]
